FAERS Safety Report 7728182-4 (Version None)
Quarter: 2011Q3

REPORT INFORMATION
  Report Type: 
  Country: None (occurrence: None)
  Receive Date: 20110905
  Receipt Date: 20110821
  Transmission Date: 20111222
  Serious: Yes (Hospitalization)
  Sender: FDA-Public Use
  Company Number: PHHY2011BR76344

PATIENT
  Sex: Female

DRUGS (1)
  1. FORMOTEROL FUMARATE [Suspect]
     Indication: HYPOPNOEA
     Dosage: TWO DOSES DAILY, INHALATION
     Dates: start: 20110821

REACTIONS (2)
  - UTERINE LEIOMYOMA [None]
  - MEDICATION RESIDUE [None]
